FAERS Safety Report 18968325 (Version 1)
Quarter: 2021Q1

REPORT INFORMATION
  Report Type: Spontaneous
  Country: US (occurrence: US)
  Receive Date: 20210303
  Receipt Date: 20210303
  Transmission Date: 20210420
  Serious: Yes (Death)
  Sender: FDA-Public Use
  Company Number: None

PATIENT
  Age: 87 Year
  Sex: Male
  Weight: 74.84 kg

DRUGS (2)
  1. AZITHROMYCIN ANHYDROUS. [Suspect]
     Active Substance: AZITHROMYCIN ANHYDROUS
     Indication: COVID-19
     Dosage: ROUTE: IVPB
     Dates: start: 20200625, end: 20200707
  2. CEFTRIAXONE 1 GM [Suspect]
     Active Substance: CEFTRIAXONE
     Indication: COVID-19
     Dosage: ?          OTHER ROUTE:IVPB?
     Dates: start: 20200625, end: 20200707

REACTIONS (2)
  - COVID-19 [None]
  - Death [None]

NARRATIVE: CASE EVENT DATE: 20200718
